FAERS Safety Report 6314056-2 (Version None)
Quarter: 2009Q3

REPORT INFORMATION
  Report Type: 
  Country: None (occurrence: None)
  Receive Date: 20090818
  Receipt Date: 20090804
  Transmission Date: 20100115
  Serious: Yes (Other)
  Sender: FDA-Public Use
  Company Number: US-GENENTECH-288696

PATIENT
  Sex: Female

DRUGS (3)
  1. XOLAIR [Suspect]
     Indication: ASTHMA
     Dosage: UNK
     Dates: start: 20090414
  2. XOLAIR [Suspect]
     Dosage: UNK
     Dates: start: 20090706
  3. XOLAIR [Suspect]
     Dosage: UNK
     Dates: start: 20090730

REACTIONS (3)
  - ANXIETY [None]
  - DIZZINESS [None]
  - MUSCULAR WEAKNESS [None]
